FAERS Safety Report 24724116 (Version 3)
Quarter: 2024Q4

REPORT INFORMATION
  Report Type: Report from Study
  Country: US (occurrence: US)
  Receive Date: 20241211
  Receipt Date: 20241227
  Transmission Date: 20250114
  Serious: No
  Sender: BRISTOL-MYERS SQUIBB COMPANY
  Company Number: US-BRISTOL-MYERS SQUIBB COMPANY-2024-192754

PATIENT
  Age: 50 Year
  Sex: Female

DRUGS (1)
  1. COBENFY [Suspect]
     Active Substance: TROSPIUM CHLORIDE\XANOMELINE
     Indication: Product used for unknown indication
     Dosage: DOSE: 100/20MG
     Route: 048

REACTIONS (5)
  - Dry mouth [Unknown]
  - Constipation [Unknown]
  - Tachycardia [Unknown]
  - Anticholinergic effect [Unknown]
  - Dry eye [Unknown]

NARRATIVE: CASE EVENT DATE: 20241124
